FAERS Safety Report 4349401-0 (Version None)
Quarter: 2004Q2

REPORT INFORMATION
  Report Type: 
  Country: None (occurrence: None)
  Receive Date: 20040428
  Receipt Date: 20040415
  Transmission Date: 20050107
  Serious: Yes (Hospitalization)
  Sender: FDA-Public Use
  Company Number: CH-GLAXOSMITHKLINE-B0330237A

PATIENT
  Age: 71 Year
  Sex: Female

DRUGS (11)
  1. DEROXAT [Suspect]
     Indication: DEPRESSION
     Dosage: 20MG PER DAY
  2. ACETYL SALICYLIC ACID [Suspect]
     Indication: PROPHYLAXIS
     Dosage: 100MG PER DAY
     Route: 048
     Dates: start: 20040219
  3. CLOPIDOGREL [Suspect]
     Indication: PROPHYLAXIS
     Dosage: 75MG PER DAY
     Route: 048
     Dates: start: 20040214, end: 20040219
  4. PANTOPRAZOLE [Concomitant]
     Dosage: 20MG PER DAY
     Route: 048
  5. ACETAMINOPHEN [Concomitant]
     Dosage: 4G PER DAY
     Route: 048
  6. AMLODIPINE [Concomitant]
     Dosage: 5MG PER DAY
     Route: 048
  7. ENALAPRIL MALEATE [Concomitant]
     Dosage: 15MG PER DAY
     Route: 048
  8. OXAZEPAM [Concomitant]
     Dosage: 15MG PER DAY
     Route: 048
  9. METOPROLOL [Concomitant]
     Dosage: 50MG PER DAY
     Route: 048
  10. CLOMETHIAZOLE [Concomitant]
     Dosage: 300MG PER DAY
     Route: 048
  11. ARTHROTEC [Concomitant]
     Route: 048

REACTIONS (8)
  - CHEST PAIN [None]
  - DYSAESTHESIA [None]
  - DYSSTASIA [None]
  - MYOCARDIAL INFARCTION [None]
  - PARAESTHESIA [None]
  - PARAPARESIS [None]
  - SUBDURAL HAEMATOMA [None]
  - URINARY INCONTINENCE [None]
